FAERS Safety Report 7213196-3 (Version None)
Quarter: 2011Q1

REPORT INFORMATION
  Report Type: 
  Country: None (occurrence: None)
  Receive Date: 20110106
  Receipt Date: 20110104
  Transmission Date: 20110831
  Serious: Yes (Hospitalization)
  Sender: FDA-Public Use
  Company Number: NL-ROCHE-748729

PATIENT
  Weight: 85 kg

DRUGS (9)
  1. AMOXICILLIN [Concomitant]
  2. HYDROCHLOROTHIAZIDE [Concomitant]
     Dosage: REPORTED AS: HYDROCHLOOTHIAZIDE
     Route: 048
  3. MOVICOLON [Concomitant]
     Route: 048
     Dates: start: 20100901
  4. CAPECITABINE [Suspect]
     Indication: GASTRIC CANCER
     Dosage: DOSE: 1000MG/M2 BID FROM DAY 1-14 EVERY 3 WEEKS (FROM PROTOCOL); LAST DOSE PRIOR TO SAE: 01 JAN 2011
     Route: 048
     Dates: start: 20100604
  5. EPIRUBICIN [Suspect]
     Indication: GASTRIC CANCER
     Dosage: DOSE, ROUTE, FREQUENCY FROM PROTOCOL; FORM: INTRAVENOUS PUSH; LAST DOSE PRIOR TO SAE: 05 DEC 2010
     Route: 042
     Dates: start: 20100604
  6. CISPLATIN [Suspect]
     Indication: GASTRIC CANCER
     Dosage: DOSE, ROUTE, FREQUENCY FROM PROTOCOL; LAST DOSE PRIOR TO SAE: 05 DEC 2010
     Route: 042
     Dates: start: 20100604
  7. DIOVAN [Concomitant]
     Route: 048
     Dates: start: 20101013
  8. NEXIUM [Concomitant]
  9. CODEINE [Concomitant]
     Route: 048

REACTIONS (4)
  - PNEUMONIA [None]
  - GASTRIC DISORDER [None]
  - NAUSEA [None]
  - VOMITING [None]
